FAERS Safety Report 9104086 (Version 2)
Quarter: 2013Q2

REPORT INFORMATION
  Report Type: Spontaneous
  Country: PT (occurrence: PT)
  Receive Date: 20130219
  Receipt Date: 20130509
  Transmission Date: 20140414
  Serious: Yes (Other)
  Sender: FDA-Public Use
  Company Number: PT-PFIZER INC-2013056270

PATIENT
  Sex: Male

DRUGS (2)
  1. ZYVOXID [Suspect]
     Dosage: 600 MG, 2X/DAY
     Dates: start: 20130124, end: 20130128
  2. IMIPENEM [Concomitant]
     Indication: LIVER ABSCESS
     Dosage: UNK
     Dates: start: 201212, end: 20130128

REACTIONS (2)
  - Toxic skin eruption [Recovered/Resolved]
  - Eosinophilia [Recovered/Resolved]
